FAERS Safety Report 8804634 (Version 2)
Quarter: 2012Q4

REPORT INFORMATION
  Report Type: 
  Country: JP (occurrence: JP)
  Receive Date: 20120924
  Receipt Date: 20121001
  Transmission Date: 20130627
  Serious: Yes (Other)
  Sender: FDA-Public Use
  Company Number: JP-RANBAXY-2012RR-60382

PATIENT
  Age: 35 Year
  Sex: Female

DRUGS (4)
  1. PREDNISOLONE [Suspect]
     Indication: SYSTEMIC LUPUS ERYTHEMATOSUS
     Dosage: 50 mg/day
     Route: 065
  2. RISPERIDONE [Suspect]
     Indication: SUBSTANCE-INDUCED MOOD DISORDER
     Dosage: 1 mg/day (same as maximum dosage)
     Route: 065
  3. RISPERIDONE [Suspect]
     Dosage: UNK
  4. PREDNISOLONE [Concomitant]
     Indication: SYSTEMIC LUPUS ERYTHEMATOSUS
     Dosage: 35 mg/day
     Route: 065

REACTIONS (1)
  - Substance-induced mood disorder [Recovered/Resolved]
